FAERS Safety Report 9068726 (Version 2)
Quarter: 2013Q1

REPORT INFORMATION
  Report Type: Spontaneous
  Country: US (occurrence: US)
  Receive Date: 20130128
  Receipt Date: 20130325
  Transmission Date: 20140127
  Serious: Yes (Other)
  Sender: FDA-Public Use
  Company Number: US-SHIRE-ALL1-2013-00316

PATIENT
  Age: 35 None
  Sex: Female
  Weight: 61.68 kg

DRUGS (11)
  1. VYVANSE [Suspect]
     Indication: ATTENTION DEFICIT/HYPERACTIVITY DISORDER
     Dosage: 30 MG, 1X/DAY:QD
     Route: 048
     Dates: start: 20121030, end: 20121222
  2. NEURONTIN [Concomitant]
     Indication: NERVE INJURY
     Dosage: 300 MG, OTHER (EVERY 8 HOURS)
     Route: 048
     Dates: start: 2011
  3. PROZAC [Concomitant]
     Indication: DEPRESSION
     Dosage: 20 MG, 1X/DAY:QD
     Route: 048
     Dates: start: 2011
  4. ACARBOSA [Concomitant]
     Indication: HYPOGLYCAEMIA
     Dosage: 25 MG, OTHER (BEFORE EACH MEAL)
     Route: 048
     Dates: start: 201107
  5. AMLODIPINE [Concomitant]
     Indication: BLOOD PRESSURE
     Dosage: 5 MG, 1X/DAY:QD
     Route: 048
     Dates: start: 2011
  6. FLOMAX                             /00889901/ [Concomitant]
     Indication: BLADDER DISORDER
     Dosage: 0.4 MG, 1X/DAY:QD
     Route: 048
     Dates: start: 2011
  7. AMITIZA [Concomitant]
     Indication: GASTROINTESTINAL DISORDER
     Dosage: 24 ?G, 2X/DAY:BID
     Route: 048
     Dates: start: 2011
  8. FLEXERIL                           /00428402/ [Concomitant]
     Indication: PAIN
     Dosage: 0.4 MG, 1X/DAY:QD
     Route: 048
     Dates: start: 2011
  9. ULTRAM [Concomitant]
     Indication: PAIN
     Dosage: 50 MG, OTHER (EVERY 3 HOURS AS NEEDED)
     Route: 048
     Dates: start: 2011
  10. PHENERGAN                          /00033001/ [Concomitant]
     Indication: NAUSEA
     Dosage: 6.2 MG SOLUTION PER 5 ML, 10-20 ML  (EVERY 6 HOURS AS NEEDED)
     Route: 048
     Dates: start: 2011
  11. KLONOPIN [Concomitant]
     Indication: ANXIETY
     Dosage: 1 MG, OTHER (EVERY 3 HOURS DAILY)
     Route: 048
     Dates: start: 2011

REACTIONS (6)
  - Psychotic behaviour [Recovered/Resolved]
  - Abnormal behaviour [Recovered/Resolved]
  - Imprisonment [Recovered/Resolved]
  - Anger [Recovered/Resolved]
  - Mania [Recovered/Resolved]
  - Aggression [Recovered/Resolved]
